FAERS Safety Report 5139985-7 (Version None)
Quarter: 2006Q4

REPORT INFORMATION
  Report Type: 
  Country: None (occurrence: None)
  Receive Date: 20061031
  Receipt Date: 20061023
  Transmission Date: 20070319
  Serious: Yes (Death, Hospitalization, Other)
  Sender: FDA-Public Use
  Company Number: US-AVENTIS-200618830US

PATIENT
  Age: 70 Year
  Sex: Female

DRUGS (2)
  1. LOVENOX [Suspect]
     Indication: ATRIAL FIBRILLATION
     Dosage: DOSE: UNK
  2. LOVENOX [Suspect]
     Dosage: DOSE: INCREASED

REACTIONS (3)
  - DEATH [None]
  - HAEMOGLOBIN DECREASED [None]
  - RETROPERITONEAL HAEMORRHAGE [None]
